FAERS Safety Report 23268181 (Version 2)
Quarter: 2024Q1

REPORT INFORMATION
  Report Type: Spontaneous
  Country: US (occurrence: US)
  Receive Date: 20231206
  Receipt Date: 20240322
  Transmission Date: 20240409
  Serious: Yes (Hospitalization, Other)
  Sender: FDA-Public Use
  Company Number: US-ABBVIE-5526003

PATIENT
  Age: 65 Year
  Sex: Male
  Weight: 104 kg

DRUGS (20)
  1. NORCO [Suspect]
     Active Substance: ACETAMINOPHEN\HYDROCODONE BITARTRATE
     Indication: Product used for unknown indication
     Dosage: TAKE 1 TABLET THEN EVERY 12 HRS FOR 2 DAYS
  2. NORCO [Suspect]
     Active Substance: ACETAMINOPHEN\HYDROCODONE BITARTRATE
     Indication: Product used for unknown indication
     Dosage: EVERY 24 HRS FOR 1 DAY. AS NEEDED FOR 5 DAYS
  3. NORCO [Suspect]
     Active Substance: ACETAMINOPHEN\HYDROCODONE BITARTRATE
     Indication: Product used for unknown indication
     Dosage: TAKE 1 TABLET BY MOUTH EVERY 6 HRS FOR 2 DAYS
  4. PEPCID [Concomitant]
     Active Substance: FAMOTIDINE
     Indication: Product used for unknown indication
     Dosage: FORM STRENGTH 20 MILLIGRAM?TAKE1 TABLET(20MG30 TABLET)
     Route: 048
  5. ESOMEPRAZOLE [Concomitant]
     Active Substance: ESOMEPRAZOLE
     Indication: Product used for unknown indication
     Dosage: TAKE 40 MG BY MOUTH EVERY MORNING?FORM STRENGTH 40 MILLIGRAM
     Route: 048
  6. HYZAAR [Concomitant]
     Active Substance: HYDROCHLOROTHIAZIDE\LOSARTAN POTASSIUM
     Indication: Product used for unknown indication
     Dosage: 100-12.5 MG PER TABLET
  7. NORVASC [Concomitant]
     Active Substance: AMLODIPINE BESYLATE
     Indication: Product used for unknown indication
     Dosage: FORM STRENGTH 10 MILLIGRAM
     Route: 048
  8. LOSARTAN POTASSIUM AND HYDROCHLOROTHIAZIDE [Concomitant]
     Active Substance: HYDROCHLOROTHIAZIDE\LOSARTAN POTASSIUM
     Indication: Product used for unknown indication
     Dosage: 100-12.5 MG
  9. KEFLEX [Concomitant]
     Active Substance: CEPHALEXIN
     Indication: Product used for unknown indication
     Dosage: FOR 5 DAYS.? FORM STRENGTH 500 MILLIGRAM
     Route: 048
  10. LOVENOX [Concomitant]
     Active Substance: ENOXAPARIN SODIUM
     Indication: Product used for unknown indication
  11. FLOMAX [Concomitant]
     Active Substance: TAMSULOSIN HYDROCHLORIDE
     Indication: Product used for unknown indication
     Dosage: FORM STRENGTH: 0.4 MILLIGRAM
     Route: 048
  12. XARELTO [Concomitant]
     Active Substance: RIVAROXABAN
     Indication: Product used for unknown indication
     Dosage: TAKE 1 TABLET (20 MG TOTAL) BY MOUTH EVERY EVENING WITH DINNER.?FORM STRENGTH: 20 MILLIGRAM
     Route: 048
     Dates: start: 20210122
  13. XARELTO [Concomitant]
     Active Substance: RIVAROXABAN
     Indication: Product used for unknown indication
     Dosage: TAKE 1 TABLET (15 MG TOTAL) BY MOUTH 2 (TWO) TIMES DAILY WITH MEALS FOR 21 DAYS.?FORM STRENGTH: 1...
     Route: 048
  14. ZINC [Concomitant]
     Active Substance: PYRITHIONE ZINC\ZINC\ZINC CHLORIDE
     Indication: Product used for unknown indication
     Dosage: FORM STRENGTH 50 MILLIGRAM
  15. TESTOSTERONE CYPIONATE [Concomitant]
     Active Substance: TESTOSTERONE CYPIONATE
     Indication: Product used for unknown indication
     Dosage: 200 MG/ML INJECTION?INJECT INTO MUSCLE 0.375ML
  16. VITAMIN D3 [Concomitant]
     Active Substance: CHOLECALCIFEROL
     Indication: Product used for unknown indication
     Dosage: TAKE 10,000 UNITS BY MOUTH DAILY. TAKE 2 CAPSULES (10,000 UNITS) BY MOUTH DAILY
     Route: 048
  17. VITAMIN C [Concomitant]
     Active Substance: ASCORBIC ACID
     Indication: Product used for unknown indication
     Dosage: FORM STRENGTH 1000 MILLIGRAM
  18. VITAMINS [Concomitant]
     Active Substance: VITAMINS
     Indication: Product used for unknown indication
  19. NEXIUM [Concomitant]
     Active Substance: ESOMEPRAZOLE MAGNESIUM
     Indication: Product used for unknown indication
     Dosage: FORM STRENGTH 40 MILLIGRAM?TAKE 40 MG BY MOUTH EVERY MORNING
     Route: 048
  20. ACETYLSALICYLIC ACID KRKA [Concomitant]
     Indication: Product used for unknown indication
     Dates: start: 202105

REACTIONS (18)
  - Pulmonary embolism [Unknown]
  - Upper gastrointestinal haemorrhage [Unknown]
  - Gastritis [Unknown]
  - Gastric banding [Unknown]
  - Wound infection [Unknown]
  - Rectal haemorrhage [Unknown]
  - Cellulitis [Unknown]
  - Melaena [Unknown]
  - Medical device site erosion [Unknown]
  - Medical device site haemorrhage [Unknown]
  - Tachycardia [Unknown]
  - Faeces discoloured [Unknown]
  - Haemoglobin increased [Unknown]
  - Haematochezia [Unknown]
  - Medical device removal [Unknown]
  - Faeces discoloured [Recovered/Resolved]
  - Occult blood [Unknown]
  - Hypertension [Unknown]

NARRATIVE: CASE EVENT DATE: 20201101
